FAERS Safety Report 19629796 (Version 2)
Quarter: 2021Q3

REPORT INFORMATION
  Report Type: Spontaneous
  Country: MX (occurrence: MX)
  Receive Date: 20210728
  Receipt Date: 20210803
  Transmission Date: 20211014
  Serious: Yes (Other)
  Sender: FDA-Public Use
  Company Number: MX-PFIZER INC-2021887587

PATIENT
  Age: 62 Year
  Sex: Female

DRUGS (1)
  1. AROMASIN [Suspect]
     Active Substance: EXEMESTANE
     Indication: BREAST CANCER
     Dosage: UNK
     Dates: start: 2019

REACTIONS (9)
  - Nausea [Unknown]
  - Microcytosis [Unknown]
  - Hypochromic anaemia [Unknown]
  - Decreased appetite [Unknown]
  - Fatigue [Unknown]
  - Dermatitis [Unknown]
  - Diffuse alopecia [Unknown]
  - Oedema [Unknown]
  - Pancytopenia [Unknown]

NARRATIVE: CASE EVENT DATE: 20210712
